FAERS Safety Report 7280863-5 (Version None)
Quarter: 2011Q1

REPORT INFORMATION
  Report Type: 
  Country: None (occurrence: None)
  Receive Date: 20110208
  Receipt Date: 20110202
  Transmission Date: 20110831
  Serious: No
  Sender: FDA-Public Use
  Company Number: US-PFIZER INC-2011024401

PATIENT
  Sex: Male

DRUGS (2)
  1. LYRICA [Suspect]
     Dosage: 75 MG, UNK
     Route: 048
  2. LYRICA [Suspect]
     Dosage: 300 MG, UNK
     Route: 048

REACTIONS (1)
  - PRODUCT MEASURED POTENCY ISSUE [None]
